FAERS Safety Report 17899096 (Version 2)
Quarter: 2021Q4

REPORT INFORMATION
  Report Type: Spontaneous
  Country: US (occurrence: US)
  Receive Date: 20200616
  Receipt Date: 20211215
  Transmission Date: 20220303
  Serious: Yes (Other)
  Sender: FDA-Public Use
  Company Number: US-SAARTEMIS-SAC202006120230

PATIENT
  Age: 51 Year
  Sex: Male

DRUGS (1)
  1. ZANTAC [Suspect]
     Active Substance: RANITIDINE HYDROCHLORIDE
     Indication: Dyspepsia
     Dosage: FREQUENCY: OCCASIONAL
     Route: 065
     Dates: start: 200201, end: 201701

REACTIONS (1)
  - Brain neoplasm malignant [Unknown]

NARRATIVE: CASE EVENT DATE: 20170401
